FAERS Safety Report 6179957-7 (Version None)
Quarter: 2009Q2

REPORT INFORMATION
  Report Type: 
  Country: None (occurrence: None)
  Receive Date: 20090505
  Receipt Date: 20090428
  Transmission Date: 20091009
  Serious: Yes (Other)
  Sender: FDA-Public Use
  Company Number: US-GENENTECH-281789

PATIENT
  Age: 64 Year
  Sex: Male

DRUGS (1)
  1. ACTIVASE [Suspect]
     Indication: PERIPHERAL ARTERIAL OCCLUSIVE DISEASE
     Dosage: 15 MG, SINGLE
     Route: 013

REACTIONS (3)
  - ABDOMINAL PAIN [None]
  - HAEMATURIA [None]
  - LIVEDO RETICULARIS [None]
